FAERS Safety Report 4911340-1 (Version None)
Quarter: 2006Q1

REPORT INFORMATION
  Report Type: 
  Country: None (occurrence: None)
  Receive Date: 20060206
  Receipt Date: 20060120
  Transmission Date: 20060701
  Serious: Yes (Other)
  Sender: FDA-Public Use
  Company Number: 200410546BBBE

PATIENT
  Sex: Male

DRUGS (26)
  1. HYPRHO-D [Suspect]
     Dosage: UNK, NI
     Route: 065
     Dates: start: 19941216
  2. HYPRHO-D [Suspect]
     Dosage: UNK,NI
     Route: 065
     Dates: start: 19950303
  3. THIMEROSAL ^MERTHIOLATE^ [Suspect]
     Dosage: NI
  4. PRELONE [Concomitant]
  5. HEPATITIS B VACCINE [Concomitant]
  6. RACEMIC EPINEPHRINE [Concomitant]
  7. ROCEPHIN [Concomitant]
  8. ZITHROMAX [Concomitant]
  9. AMPICILLIN SODIUM [Concomitant]
  10. DECADRON SRC [Concomitant]
  11. RITALIN [Concomitant]
  12. CORTICOSTEROIDS [Concomitant]
  13. SOLU-MEDROL [Concomitant]
  14. ALBUTEROL [Concomitant]
  15. STRATTERA [Concomitant]
  16. CONCERTA [Concomitant]
  17. AQUAMEPHYTON [Concomitant]
  18. ERYTHROMYCIN [Concomitant]
  19. DPT [Concomitant]
  20. OPV ^LEDERLE^ [Concomitant]
  21. HIB-IMUNE [Concomitant]
  22. M-M-R II [Concomitant]
  23. IPV ^CONNAUGHT^ [Concomitant]
  24. VARICELLA [Concomitant]
  25. TUSSIN SYRUP [Concomitant]
  26. OXYGEN [Concomitant]

REACTIONS (19)
  - ADENOIDAL HYPERTROPHY [None]
  - ATTENTION DEFICIT/HYPERACTIVITY DISORDER [None]
  - AUTISM [None]
  - AVERSION [None]
  - BRONCHIOLITIS [None]
  - BRONCHITIS ACUTE [None]
  - CONGENITAL ANOMALY [None]
  - CROUP INFECTIOUS [None]
  - DRUG EXPOSURE DURING PREGNANCY [None]
  - DYSPHAGIA [None]
  - HAEMATURIA [None]
  - INTERSTITIAL LUNG DISEASE [None]
  - LABORATORY TEST ABNORMAL [None]
  - LARYNGEAL STENOSIS [None]
  - NEURODEVELOPMENTAL DISORDER [None]
  - OTITIS MEDIA CHRONIC [None]
  - PROLONGED LABOUR [None]
  - RESPIRATORY TRACT INFECTION [None]
  - VIRAL PHARYNGITIS [None]
